FAERS Safety Report 8184169-1 (Version None)
Quarter: 2012Q1

REPORT INFORMATION
  Report Type: 
  Country: None (occurrence: None)
  Receive Date: 20120305
  Receipt Date: 20120221
  Transmission Date: 20120608
  Serious: Yes (Hospitalization, Other)
  Sender: FDA-Public Use
  Company Number: JP-ROCHE-1028385

PATIENT
  Age: 85 Year
  Sex: Male

DRUGS (6)
  1. DUTASTERIDE [Concomitant]
  2. RANIBIZUMAB [Suspect]
     Dates: start: 20111130
  3. RANIBIZUMAB [Suspect]
     Indication: AGE-RELATED MACULAR DEGENERATION
     Route: 050
     Dates: start: 20111102
  4. FLIVAS [Concomitant]
  5. LEVOFLOXACIN [Concomitant]
  6. ETILEFRINE HYDROCHLORIDE [Concomitant]

REACTIONS (1)
  - ANGINA UNSTABLE [None]
